FAERS Safety Report 16960395 (Version 1)
Quarter: 2019Q4

REPORT INFORMATION
  Report Type: Spontaneous
  Country: JP (occurrence: JP)
  Receive Date: 20191025
  Receipt Date: 20191025
  Transmission Date: 20200122
  Serious: Yes (Death, Other)
  Sender: FDA-Public Use
  Company Number: JP-SUN PHARMACEUTICAL INDUSTRIES LTD-2019RR-225405

PATIENT
  Age: 65 Year
  Sex: Male
  Weight: 76.9 kg

DRUGS (5)
  1. OXALIPLATIN. [Suspect]
     Active Substance: OXALIPLATIN
     Indication: COLON CANCER STAGE IV
     Dosage: 60 MILLIGRAM/SQ. METER (112 MG), AS MFOLFOX-6 THERAPY, 7 CYCLES
     Route: 065
     Dates: start: 201712
  2. BEVACIZUMAB. [Suspect]
     Active Substance: BEVACIZUMAB
     Indication: COLON CANCER STAGE IV
     Dosage: 5 MILLIGRAM/KILOGRAM (384 MG), 7 CYCLES
     Route: 065
     Dates: start: 201712
  3. FLUOROURACIL. [Suspect]
     Active Substance: FLUOROURACIL
     Indication: COLON CANCER STAGE IV
     Dosage: 400 MILLIGRAM/SQ. METER (751 MG), BOLUS, AS MFOLFOX-6 THERAPY, 7 CYCLES
     Route: 065
     Dates: start: 201712
  4. CALCIUM FOLINAT [Suspect]
     Active Substance: LEUCOVORIN CALCIUM
     Indication: COLON CANCER STAGE IV
     Dosage: 200 MILLIGRAM/SQ. METER (375 MG), AS MFOLFOX-6 THERAPY, 7 CYCLES
     Route: 065
     Dates: start: 201712
  5. FLUOROURACIL. [Suspect]
     Active Substance: FLUOROURACIL
     Dosage: 2400 MILLIGRAM/SQ. METER (4500 MG), 46-HR INJECTION, AS MFOLFOX-6 THERAPY, 7 CYCLES
     Route: 042
     Dates: start: 201712

REACTIONS (5)
  - Perforation [Fatal]
  - Therapy partial responder [Unknown]
  - Septic shock [Fatal]
  - Thrombocytopenia [Unknown]
  - Neuropathy peripheral [Unknown]
